FAERS Safety Report 7844877-6 (Version None)
Quarter: 2011Q4

REPORT INFORMATION
  Report Type: 
  Country: None (occurrence: None)
  Receive Date: 20111025
  Receipt Date: 20111021
  Transmission Date: 20120403
  Serious: Yes (Hospitalization)
  Sender: FDA-Public Use
  Company Number: US-GLAXOSMITHKLINE-R0018342A

PATIENT
  Age: 84 Year
  Sex: Male

DRUGS (4)
  1. MICARDIS [Suspect]
     Indication: HYPERTENSION
     Dosage: 80MG PER DAY
     Route: 048
     Dates: start: 20090101, end: 20110708
  2. BLINDED VACCINE [Suspect]
     Route: 030
     Dates: start: 20110503, end: 20110503
  3. CARVEDILOL [Suspect]
     Indication: HYPERTENSION
     Dosage: 50MG PER DAY
     Route: 048
     Dates: start: 20101129, end: 20110708
  4. CAT SCAN DYE [Suspect]
     Indication: ANGIOGRAM
     Route: 042
     Dates: start: 20110620, end: 20110620

REACTIONS (3)
  - RENAL FAILURE ACUTE [None]
  - ORTHOSTATIC HYPOTENSION [None]
  - CYSTITIS KLEBSIELLA [None]
